FAERS Safety Report 5718012-4 (Version None)
Quarter: 2008Q2

REPORT INFORMATION
  Report Type: 
  Country: None (occurrence: None)
  Receive Date: 20080425
  Receipt Date: 20080423
  Transmission Date: 20081010
  Serious: Yes (Other)
  Sender: FDA-Public Use
  Company Number: B0517806A

PATIENT
  Age: 12 Year
  Sex: Male

DRUGS (5)
  1. RELENZA [Suspect]
     Indication: DRUG USE FOR UNKNOWN INDICATION
     Dosage: 10MG TWICE PER DAY
     Route: 055
     Dates: start: 20080410, end: 20080414
  2. CALONAL [Concomitant]
     Route: 065
  3. HUSCODE [Concomitant]
     Route: 048
  4. ALLELOCK [Concomitant]
     Route: 048
  5. CLARITHROMYCIN [Concomitant]
     Route: 048

REACTIONS (1)
  - LOSS OF CONSCIOUSNESS [None]
